FAERS Safety Report 9267156 (Version 1)
Quarter: 2013Q2

REPORT INFORMATION
  Report Type: Spontaneous
  Country: CA (occurrence: CA)
  Receive Date: 20130502
  Receipt Date: 20130502
  Transmission Date: 20140414
  Serious: Yes (Death)
  Sender: FDA-Public Use
  Company Number: CA-B.I. PHARMACEUTICALS,INC./RIDGEFIELD-2013-CN-00769CN

PATIENT
  Sex: Female

DRUGS (2)
  1. PRADAXA [Suspect]
  2. COUMADIN [Concomitant]

REACTIONS (1)
  - Ischaemic stroke [Fatal]
